FAERS Safety Report 7311110-3 (Version None)
Quarter: 2011Q1

REPORT INFORMATION
  Report Type: 
  Country: None (occurrence: None)
  Receive Date: 20110224
  Receipt Date: 20110221
  Transmission Date: 20110831
  Serious: Yes (Life-Threatening, Hospitalization)
  Sender: FDA-Public Use
  Company Number: ES-ROCHE-755873

PATIENT
  Sex: Female
  Weight: 90 kg

DRUGS (5)
  1. ANASTROZOLE [Concomitant]
  2. AVASTIN [Suspect]
     Dosage: DOSE: 900,
     Route: 042
     Dates: start: 20100607, end: 20100921
  3. TAXOL [Suspect]
     Dosage: DOSE: 160
     Route: 042
     Dates: start: 20100607, end: 20100825
  4. CO DIOVAN [Concomitant]
     Indication: HYPERTENSION
  5. LETROZOLE [Concomitant]
     Indication: BREAST CANCER
     Dosage: DOSE: 2.5 DAILY
     Route: 048
     Dates: start: 20100901, end: 20110125

REACTIONS (2)
  - PULMONARY EMBOLISM [None]
  - MYELOID LEUKAEMIA [None]
